FAERS Safety Report 7115621-5 (Version None)
Quarter: 2010Q4

REPORT INFORMATION
  Report Type: 
  Country: None (occurrence: None)
  Receive Date: 20101122
  Receipt Date: 20101111
  Transmission Date: 20110411
  Serious: Yes (Other)
  Sender: FDA-Public Use
  Company Number: US-JNJFOC-20100908368

PATIENT
  Sex: Female

DRUGS (8)
  1. FENTANYL [Suspect]
     Indication: ARTHRALGIA
     Route: 062
  2. FENTANYL [Suspect]
     Route: 062
  3. FENTANYL [Suspect]
     Dosage: NDC: 0781-7112-55
     Route: 062
  4. FENTANYL [Suspect]
     Indication: FIBROMYALGIA
     Route: 062
  5. FENTANYL [Suspect]
     Route: 062
  6. FENTANYL [Suspect]
     Dosage: NDC: 0781-7112-55
     Route: 062
  7. FENTANYL [Suspect]
     Dosage: NDC: 0781-7242-55
     Route: 062
  8. FENTANYL [Suspect]
     Dosage: NDC: 0781-7242-55
     Route: 062

REACTIONS (8)
  - DIZZINESS [None]
  - DRUG DOSE OMISSION [None]
  - DRUG INTOLERANCE [None]
  - INSOMNIA [None]
  - PRODUCT QUALITY ISSUE [None]
  - TREATMENT NONCOMPLIANCE [None]
  - VERTIGO [None]
  - WEIGHT DECREASED [None]
